FAERS Safety Report 15067091 (Version 1)
Quarter: 2018Q2

REPORT INFORMATION
  Report Type: Spontaneous
  Country: FR (occurrence: FR)
  Receive Date: 20180626
  Receipt Date: 20180626
  Transmission Date: 20180711
  Serious: Yes (Other)
  Sender: FDA-Public Use
  Company Number: PHHY2017FR026189

PATIENT
  Age: 14 Year
  Sex: Female
  Weight: 42.5 kg

DRUGS (7)
  1. CASPOFUNGIN [Concomitant]
     Active Substance: CASPOFUNGIN
     Indication: PRODUCT USED FOR UNKNOWN INDICATION
     Dosage: 50 MG, UNK
     Route: 065
  2. VORICONAZOLE. [Interacting]
     Active Substance: VORICONAZOLE
     Dosage: 8.75 MG/KG, Q12H
     Route: 048
  3. METHOTREXATE. [Concomitant]
     Active Substance: METHOTREXATE
     Indication: PRODUCT USED FOR UNKNOWN INDICATION
     Dosage: 5.5 G, UNK
     Route: 041
  4. VORICONAZOLE. [Interacting]
     Active Substance: VORICONAZOLE
     Dosage: 300 MG, UNK
     Route: 042
  5. VORICONAZOLE. [Suspect]
     Active Substance: VORICONAZOLE
     Indication: BRONCHOPULMONARY ASPERGILLOSIS
     Dosage: 7.5 MG/KG, BID
     Route: 042
  6. VINCRISTINE [Interacting]
     Active Substance: VINCRISTINE
     Indication: ACUTE LYMPHOCYTIC LEUKAEMIA
     Dosage: 2 MG, UNK
     Route: 065
  7. VORICONAZOLE. [Interacting]
     Active Substance: VORICONAZOLE
     Dosage: 7.5 MG, Q12H
     Route: 048

REACTIONS (8)
  - Respiratory distress [Recovering/Resolving]
  - Drug interaction [Recovering/Resolving]
  - Condition aggravated [Recovering/Resolving]
  - Neuralgia [Recovering/Resolving]
  - Encephalopathy [Recovered/Resolved]
  - Bronchopulmonary aspergillosis [Recovering/Resolving]
  - Inflammation [Recovering/Resolving]
  - Hallucinations, mixed [Recovered/Resolved]
